FAERS Safety Report 21341219 (Version 1)
Quarter: 2022Q3

REPORT INFORMATION
  Report Type: Spontaneous
  Country: IL (occurrence: IL)
  Receive Date: 20220916
  Receipt Date: 20220916
  Transmission Date: 20221027
  Serious: Yes (Hospitalization, Other)
  Sender: FDA-Public Use
  Company Number: IL-SUN PHARMACEUTICAL INDUSTRIES LTD-2022R1-354208

PATIENT
  Age: 37 Year
  Sex: Male

DRUGS (1)
  1. PREDNISONE [Suspect]
     Active Substance: PREDNISONE
     Indication: Gouty arthritis
     Dosage: 40 MILLIGRAM, DAILY
     Route: 065

REACTIONS (14)
  - Arteriosclerosis [Unknown]
  - Cardiac failure congestive [Unknown]
  - Cataract [Unknown]
  - Congestive cardiomyopathy [Unknown]
  - Cushing^s syndrome [Unknown]
  - Dyslipidaemia [Unknown]
  - Hypertension [Unknown]
  - Ichthyosis acquired [Unknown]
  - Myopathy [Unknown]
  - Osteoporosis [Unknown]
  - Pneumocystis jirovecii pneumonia [Unknown]
  - Steroid diabetes [Unknown]
  - Steatohepatitis [Unknown]
  - Weight increased [Unknown]
